FAERS Safety Report 7423559-9 (Version None)
Quarter: 2011Q2

REPORT INFORMATION
  Report Type: 
  Country: None (occurrence: None)
  Receive Date: 20110407
  Receipt Date: 20110323
  Transmission Date: 20111010
  Serious: Yes (Hospitalization, Other)
  Sender: FDA-Public Use
  Company Number: 2010AL002944

PATIENT
  Age: 59 Year
  Sex: Female
  Weight: 80.831 kg

DRUGS (57)
  1. ARMODAFINIL [Concomitant]
  2. METHOCARBAMOL [Concomitant]
  3. LUNESTA [Concomitant]
  4. LIDOCAINE [Concomitant]
  5. DOMPERIDONE [Concomitant]
  6. DEXTROAMPHETAMINE [Concomitant]
  7. METOCLOPRAMIDE [Suspect]
     Indication: ERUCTATION
     Dosage: 10 MG; PO
     Route: 048
     Dates: start: 19990101, end: 20080801
  8. HYDROCHLOROTHIAZIDE [Concomitant]
  9. DETROL [Concomitant]
  10. ALLEGRA [Concomitant]
  11. TROSPIUM CHLORIDE [Concomitant]
  12. PREVACID [Concomitant]
  13. KEPPRA [Concomitant]
  14. PROMETHAZINE [Concomitant]
  15. MERIDIA [Concomitant]
  16. PHENTERMINE [Concomitant]
  17. ZYRTEC [Concomitant]
  18. ORLISTAT [Concomitant]
  19. AMOXICILLIN [Concomitant]
  20. AUGMENTIN [Concomitant]
  21. CLONAZEPAM [Concomitant]
  22. ASPIRIN [Concomitant]
  23. DITROPAN [Concomitant]
  24. POTASSIUM CHLORIDE [Concomitant]
  25. IBUPROFEN [Concomitant]
  26. HYDROCORTISONE [Concomitant]
  27. CIPROFLOXACIN [Concomitant]
  28. PROPOXYPHENE HYDROCHLORIDE [Concomitant]
  29. MEDROL [Concomitant]
  30. MISOPROSTOL [Concomitant]
  31. PROPRANOLOL [Concomitant]
  32. PREMARIN [Concomitant]
  33. LOTENSIN [Concomitant]
  34. VIOXX [Concomitant]
  35. LORTAB [Concomitant]
  36. BIAXIN [Concomitant]
  37. BACLOFEN [Concomitant]
  38. AMLODIPINE [Concomitant]
  39. TRAMADOL [Concomitant]
  40. OMEPRAZOLE [Concomitant]
  41. FENOFIBRATE [Concomitant]
  42. ATIVAN [Concomitant]
  43. TETRABENAZINE [Concomitant]
  44. DIAZEPAM [Concomitant]
  45. MEBENDAZOLE [Concomitant]
  46. AVELOX [Concomitant]
  47. CATAPRES [Concomitant]
  48. FOSAMAX [Concomitant]
  49. TOLTERODINE [Concomitant]
  50. LEVOTHYROXINE SODIUM [Concomitant]
  51. ADDERALL 10 [Concomitant]
  52. SINEMET [Concomitant]
  53. DANTROLENE [Concomitant]
  54. SKELAXIN [Concomitant]
  55. INDOMETHACIN [Concomitant]
  56. TRAZODONE HCL [Concomitant]
  57. LEVAQUIN [Concomitant]

REACTIONS (64)
  - DYSTONIA [None]
  - OSTEOPOROSIS [None]
  - BRUXISM [None]
  - SOMNOLENCE [None]
  - MENOPAUSE [None]
  - CHEST DISCOMFORT [None]
  - DYSPHAGIA [None]
  - ADNEXA UTERI MASS [None]
  - DYSKINESIA [None]
  - INCORRECT DRUG ADMINISTRATION DURATION [None]
  - OBESITY [None]
  - TOOTH FRACTURE [None]
  - DIPLOPIA [None]
  - FATIGUE [None]
  - MUSCLE TIGHTNESS [None]
  - CARPAL TUNNEL SYNDROME [None]
  - EMOTIONAL DISORDER [None]
  - MUSCLE TWITCHING [None]
  - ROAD TRAFFIC ACCIDENT [None]
  - SLEEP APNOEA SYNDROME [None]
  - CIRCADIAN RHYTHM SLEEP DISORDER [None]
  - BLOOD TRIGLYCERIDES INCREASED [None]
  - GASTROOESOPHAGEAL REFLUX DISEASE [None]
  - TARDIVE DYSKINESIA [None]
  - EXTRAPYRAMIDAL DISORDER [None]
  - HYPERTHYROIDISM [None]
  - MUSCLE SPASMS [None]
  - TRANSIENT ISCHAEMIC ATTACK [None]
  - CONSTIPATION [None]
  - HAEMORRHOIDS [None]
  - PARAESTHESIA [None]
  - ARTHRALGIA [None]
  - DYSPEPSIA [None]
  - PARKINSON'S DISEASE [None]
  - ECONOMIC PROBLEM [None]
  - HYPERTONIC BLADDER [None]
  - HYPERTENSION [None]
  - BACK PAIN [None]
  - INCONTINENCE [None]
  - HYPOAESTHESIA [None]
  - HYPOTHYROIDISM [None]
  - RECTAL ULCER [None]
  - HYPERTRIGLYCERIDAEMIA [None]
  - MYOCLONUS [None]
  - MAMMOPLASTY [None]
  - LOSS OF CONSCIOUSNESS [None]
  - BLOOD CHOLESTEROL INCREASED [None]
  - DYSPNOEA [None]
  - BRONCHITIS [None]
  - EROSIVE OESOPHAGITIS [None]
  - DEPRESSION [None]
  - NARCOLEPSY [None]
  - ANXIETY [None]
  - NO THERAPEUTIC RESPONSE [None]
  - CHOREA [None]
  - ASPIRATION [None]
  - INTUSSUSCEPTION [None]
  - RECTAL PROLAPSE [None]
  - SPINAL OSTEOARTHRITIS [None]
  - CONFUSIONAL STATE [None]
  - MUSCULOSKELETAL PAIN [None]
  - GINGIVAL BLEEDING [None]
  - RECTAL HAEMORRHAGE [None]
  - ENDODONTIC PROCEDURE [None]
